FAERS Safety Report 5150385-6 (Version None)
Quarter: 2006Q4

REPORT INFORMATION
  Report Type: 
  Country: None (occurrence: None)
  Receive Date: 20061108
  Receipt Date: 20061026
  Transmission Date: 20070319
  Serious: Yes (Other)
  Sender: FDA-Public Use
  Company Number: 2006132340

PATIENT
  Sex: Female

DRUGS (3)
  1. SULFASALAZINE [Suspect]
     Dates: start: 20061015, end: 20061026
  2. CORTISONE ACETATE [Concomitant]
  3. ALLOPURINOL [Concomitant]

REACTIONS (3)
  - ANAL DISCOMFORT [None]
  - ORAL MUCOSA EROSION [None]
  - RASH MACULO-PAPULAR [None]
